FAERS Safety Report 4590580-8 (Version None)
Quarter: 2005Q1

REPORT INFORMATION
  Report Type: 
  Country: None (occurrence: None)
  Receive Date: 20050224
  Receipt Date: 20050207
  Transmission Date: 20050727
  Serious: Yes (Life-Threatening, Hospitalization)
  Sender: FDA-Public Use
  Company Number: AT-GLAXOSMITHKLINE-B0371456A

PATIENT
  Age: 23 Year
  Sex: Female
  Weight: 65 kg

DRUGS (4)
  1. LAMICTAL [Suspect]
     Indication: EPILEPSY
     Dosage: 200MG TWICE PER DAY
     Route: 048
     Dates: start: 20020101, end: 20050201
  2. VALPROATE SODIUM [Concomitant]
     Indication: EPILEPSY
     Dosage: 500MG FOUR TIMES PER DAY
     Route: 048
     Dates: start: 20030101
  3. PREGABALIN [Concomitant]
     Indication: EPILEPSY
     Dosage: 2TAB TWICE PER DAY
     Route: 048
     Dates: start: 20040101
  4. EFFEXOR [Concomitant]
     Indication: DEPRESSION
     Dosage: 150MG TWICE PER DAY
     Route: 048
     Dates: start: 20040101

REACTIONS (3)
  - ANAEMIA [None]
  - LEUKOPENIA [None]
  - PNEUMONIA [None]
